FAERS Safety Report 9054354 (Version 3)
Quarter: 2013Q1

REPORT INFORMATION
  Report Type: Spontaneous
  Country: CA (occurrence: CA)
  Receive Date: 20130208
  Receipt Date: 20130318
  Transmission Date: 20140127
  Serious: Yes (Hospitalization)
  Sender: FDA-Public Use
  Company Number: CA-AMGEN-CANSP2013006783

PATIENT
  Age: 55 Year
  Sex: Female
  Weight: 56.82 kg

DRUGS (2)
  1. PROLIA [Suspect]
     Indication: OSTEOPOROSIS
     Dosage: 60 MG, UNK
     Route: 058
     Dates: start: 20120720
  2. METAMUCIL                          /00029101/ [Concomitant]

REACTIONS (6)
  - Diverticulitis [Recovering/Resolving]
  - Neck pain [Unknown]
  - Gait disturbance [Unknown]
  - Arthralgia [Unknown]
  - Injection site pain [Unknown]
  - Insomnia [Unknown]
